FAERS Safety Report 6758099-3 (Version None)
Quarter: 2010Q2

REPORT INFORMATION
  Report Type: 
  Country: None (occurrence: None)
  Receive Date: 20100607
  Receipt Date: 20100527
  Transmission Date: 20101027
  Serious: Yes (Other)
  Sender: FDA-Public Use
  Company Number: DE-JNJCH-2010013038

PATIENT
  Sex: Female

DRUGS (2)
  1. REGAINE 2% [Suspect]
     Indication: ALOPECIA
     Dosage: TEXT:1ML BID
     Route: 061
  2. INTERFERON [Concomitant]
     Indication: MULTIPLE SCLEROSIS
     Dosage: TEXT:UNKNOWN
     Route: 030

REACTIONS (10)
  - ACUTE TONSILLITIS [None]
  - DYSPHAGIA [None]
  - DYSPNOEA [None]
  - MULTIPLE SCLEROSIS RELAPSE [None]
  - NAUSEA [None]
  - OFF LABEL USE [None]
  - PALPITATIONS [None]
  - PARAESTHESIA [None]
  - THROAT IRRITATION [None]
  - VERTIGO [None]
